FAERS Safety Report 22071643 (Version 2)
Quarter: 2023Q1

REPORT INFORMATION
  Report Type: Spontaneous
  Country: US (occurrence: US)
  Receive Date: 20230307
  Receipt Date: 20230330
  Transmission Date: 20230418
  Serious: No
  Sender: FDA-Public Use
  Company Number: US-PFIZER INC-PV202300041419

PATIENT
  Age: 89 Year
  Sex: Female

DRUGS (3)
  1. EUCRISA [Suspect]
     Active Substance: CRISABOROLE
     Indication: Dermatitis atopic
     Dosage: UNK, 2X/DAY
     Route: 061
  2. CALAMINE LOTION [Concomitant]
     Active Substance: CALAMINE LOTION
     Dosage: UNK, DAILY 3-4 TIMES DAILY
  3. DUPIXENT [Concomitant]
     Active Substance: DUPILUMAB
     Dosage: UNK

REACTIONS (7)
  - Therapeutic product effect incomplete [Unknown]
  - Keratoacanthoma [Unknown]
  - Tearfulness [Unknown]
  - Emotional distress [Unknown]
  - Erythema [Unknown]
  - Pruritus [Unknown]
  - Skin irritation [Unknown]

NARRATIVE: CASE EVENT DATE: 20220329
